FAERS Safety Report 8947219 (Version 1)
Quarter: 2012Q4

REPORT INFORMATION
  Report Type: 
  Country: US (occurrence: US)
  Receive Date: 20121205
  Receipt Date: 20121205
  Transmission Date: 20130627
  Serious: Yes (Other)
  Sender: FDA-Public Use
  Company Number: US-SANOFI-AVENTIS-2012SA088652

PATIENT
  Sex: Female

DRUGS (7)
  1. LANTUS [Suspect]
     Dosage: Dose:55 unit(s)
     Route: 058
  2. LANTUS [Suspect]
     Dosage: Dose:40 unit(s)
     Route: 058
     Dates: start: 2002
  3. LANTUS [Suspect]
     Dosage: Dose:120 unit(s)
     Route: 058
  4. LANTUS [Suspect]
     Dosage: Dose:90 unit(s)
     Route: 058
  5. HUMALOG [Suspect]
     Route: 065
  6. OXYGEN [Concomitant]
     Indication: CONGESTIVE HEART FAILURE
     Route: 055
  7. OXYGEN [Concomitant]
     Indication: LUNG DISORDER
     Route: 055

REACTIONS (3)
  - Cardiac failure congestive [Unknown]
  - Lung disorder [Unknown]
  - Blood glucose increased [Unknown]
